FAERS Safety Report 17505547 (Version 2)
Quarter: 2020Q3

REPORT INFORMATION
  Report Type: Spontaneous
  Country: ES (occurrence: ES)
  Receive Date: 20200305
  Receipt Date: 20200713
  Transmission Date: 20201102
  Serious: Yes (Other)
  Sender: FDA-Public Use
  Company Number: ES-SA-2020SA054410

PATIENT

DRUGS (2)
  1. LANTUS [Suspect]
     Active Substance: INSULIN GLARGINE
     Indication: TYPE 2 DIABETES MELLITUS
     Route: 058
  2. TOUJEO [Concomitant]
     Active Substance: INSULIN GLARGINE
     Indication: TYPE 2 DIABETES MELLITUS
     Dosage: 30 IU
     Route: 058
     Dates: start: 202002

REACTIONS (8)
  - Fatigue [Unknown]
  - Anxiety [Unknown]
  - Sciatica [Unknown]
  - Acute myocardial infarction [Recovering/Resolving]
  - Somnolence [Unknown]
  - Muscle spasms [Unknown]
  - Malaise [Unknown]
  - Immune system disorder [Unknown]

NARRATIVE: CASE EVENT DATE: 201911
